FAERS Safety Report 9416714 (Version 1)
Quarter: 2013Q3

REPORT INFORMATION
  Report Type: Spontaneous
  Country: US (occurrence: US)
  Receive Date: 20130724
  Receipt Date: 20130724
  Transmission Date: 20140515
  Serious: Yes (Other)
  Sender: FDA-Public Use
  Company Number: US-PFIZER INC-2013216080

PATIENT
  Age: 51 Year
  Sex: Male
  Weight: 83.9 kg

DRUGS (2)
  1. NEURONTIN [Suspect]
     Indication: NEURALGIA
     Dosage: 800 MG, 2X/DAY
  2. LOVASTATIN [Suspect]
     Indication: BLOOD CHOLESTEROL ABNORMAL
     Dosage: 10 MG, 1X/DAY

REACTIONS (4)
  - Cervical vertebral fracture [Unknown]
  - Road traffic accident [Unknown]
  - Liver function test abnormal [Unknown]
  - Drug ineffective [Unknown]
